FAERS Safety Report 8073807-X (Version None)
Quarter: 2012Q1

REPORT INFORMATION
  Report Type: 
  Country: None (occurrence: None)
  Receive Date: 20120126
  Receipt Date: 20120119
  Transmission Date: 20120608
  Serious: No
  Sender: FDA-Public Use
  Company Number: US-BAYER-2011-091909

PATIENT
  Sex: Female

DRUGS (1)
  1. PRECOSE [Suspect]
     Indication: BLOOD GLUCOSE INCREASED

REACTIONS (2)
  - ADVERSE REACTION [None]
  - THINKING ABNORMAL [None]
